FAERS Safety Report 5157207-8 (Version None)
Quarter: 2006Q4

REPORT INFORMATION
  Report Type: 
  Country: None (occurrence: None)
  Receive Date: 20061127
  Receipt Date: 20060928
  Transmission Date: 20070319
  Serious: Yes (Hospitalization, Other)
  Sender: FDA-Public Use
  Company Number: US-AMGEN-US195217

PATIENT
  Sex: Female

DRUGS (1)
  1. ENBREL [Suspect]
     Indication: RHEUMATOID ARTHRITIS
     Route: 058
     Dates: start: 20020101

REACTIONS (6)
  - CONDITION AGGRAVATED [None]
  - DISEASE PROGRESSION [None]
  - IRON DEFICIENCY ANAEMIA [None]
  - RED BLOOD CELL COUNT DECREASED [None]
  - RHEUMATOID ARTHRITIS [None]
  - WHITE BLOOD CELL COUNT INCREASED [None]
